FAERS Safety Report 24936653 (Version 1)
Quarter: 2025Q1

REPORT INFORMATION
  Report Type: Spontaneous
  Country: US (occurrence: US)
  Receive Date: 20250206
  Receipt Date: 20250206
  Transmission Date: 20250409
  Serious: No
  Sender: STALLERGENES
  Company Number: US-STALCOR-2025-AER-00031

PATIENT
  Age: 7 Year
  Sex: Male

DRUGS (3)
  1. PALFORZIA [Suspect]
     Active Substance: PEANUT
     Indication: Food allergy
     Dosage: 6X1MG: MIX CONTENTS OF CAPSULES WELL WITH SEMISOLID FOOD AS DIRECTED AND CONSUME ONCE DAILY AT APPRO
     Route: 048
  2. PALFORZIA [Suspect]
     Active Substance: PEANUT
     Dosage: 12X1MG: MIX CONTENTS OF CAPSULES WELL WITH SEMISOLID FOOD AS DIRECTED AND CONSUME ONCE DAILY AT APPR
     Route: 048
  3. ZYRTEC [Concomitant]
     Active Substance: CETIRIZINE HYDROCHLORIDE
     Indication: Product used for unknown indication

REACTIONS (4)
  - Gastroenteritis viral [Not Recovered/Not Resolved]
  - Nasopharyngitis [Not Recovered/Not Resolved]
  - Influenza [Not Recovered/Not Resolved]
  - Product dose omission issue [Not Recovered/Not Resolved]

NARRATIVE: CASE EVENT DATE: 20241201
